FAERS Safety Report 9335794 (Version 2)
Quarter: 2013Q3

REPORT INFORMATION
  Report Type: Spontaneous
  Country: US (occurrence: US)
  Receive Date: 20130606
  Receipt Date: 20130710
  Transmission Date: 20140515
  Serious: Yes (Disabling, Other)
  Sender: FDA-Public Use
  Company Number: US-009507513-1305USA018073

PATIENT
  Age: 53 Year
  Sex: Male
  Weight: 102.49 kg

DRUGS (13)
  1. PEGINTRON [Suspect]
     Indication: CHRONIC HEPATITIS C
     Dosage: 150 MICROGRAM, QW
     Route: 058
     Dates: start: 20130506, end: 20130601
  2. VICTRELIS [Suspect]
     Dosage: 800 MG, 3 TIMES A DAY WITH FOOD
     Route: 048
  3. RIBAPAK [Suspect]
     Dosage: UNK
  4. BENEFIX [Concomitant]
  5. HYDROCHLOROTHIAZIDE [Concomitant]
  6. LISINOPRIL [Concomitant]
  7. OMEGA-3 MARINE TRIGLYCERIDES [Concomitant]
  8. METOPROLOL SUCCINATE [Concomitant]
  9. CYANOCOBALAMIN [Concomitant]
  10. TRICOR (ADENOSINE) [Concomitant]
  11. CARISOPRODOL [Concomitant]
  12. ISOSORBIDE [Concomitant]
  13. VITAMINS (UNSPECIFIED) [Concomitant]

REACTIONS (6)
  - Myalgia [Recovered/Resolved]
  - Chills [Recovered/Resolved]
  - Neutrophil count decreased [Recovered/Resolved]
  - Depression [Not Recovered/Not Resolved]
  - Nausea [Recovered/Resolved]
  - Fatigue [Not Recovered/Not Resolved]
